FAERS Safety Report 12348509 (Version 1)
Quarter: 2016Q2

REPORT INFORMATION
  Report Type: Spontaneous
  Country: US (occurrence: US)
  Receive Date: 20160509
  Receipt Date: 20160509
  Transmission Date: 20160815
  Serious: Yes (Other)
  Sender: FDA-Public Use
  Company Number: US-MDT-ADR-2016-00830

PATIENT
  Age: 68 Year
  Sex: Female

DRUGS (2)
  1. MORPHINE DRUG, UNKNOWN [Suspect]
     Active Substance: MORPHINE
     Route: 037
  2. BACLOFEN. [Suspect]
     Active Substance: BACLOFEN
     Route: 037

REACTIONS (1)
  - Pain [Unknown]

NARRATIVE: CASE EVENT DATE: 20111214
